FAERS Safety Report 9724774 (Version 3)
Quarter: 2014Q1

REPORT INFORMATION
  Report Type: Spontaneous
  Country: JP (occurrence: JP)
  Receive Date: 20131202
  Receipt Date: 20140213
  Transmission Date: 20141002
  Serious: Yes (Hospitalization, Other)
  Sender: FDA-Public Use
  Company Number: JP-B.I. PHARMACEUTICALS,INC./RIDGEFIELD-2013-BI-39182NB

PATIENT
  Age: 74 Year
  Sex: Male
  Weight: 74 kg

DRUGS (6)
  1. TRAZENTA [Suspect]
     Indication: DIABETES MELLITUS MANAGEMENT
     Dosage: 5 MG
     Route: 048
     Dates: start: 20130411, end: 20130724
  2. TRAZENTA [Suspect]
     Dosage: 5 MG
     Route: 048
  3. DIOVAN / VALSARTAN [Concomitant]
     Indication: HYPERTENSION
     Route: 048
  4. LIPIDIL / FENOFIBRATE [Concomitant]
     Indication: HYPERTENSION
     Route: 048
  5. AMARYL OD / GLIMEPIRIDE [Concomitant]
     Indication: DIABETES MELLITUS
     Route: 048
  6. MILTAX / KETOPROFEN [Concomitant]
     Route: 062

REACTIONS (2)
  - Pancreatitis acute [Recovered/Resolved]
  - Pancreatitis acute [Recovered/Resolved]
